FAERS Safety Report 8957182 (Version 2)
Quarter: 2013Q1

REPORT INFORMATION
  Report Type: Spontaneous
  Country: US (occurrence: US)
  Receive Date: 20121210
  Receipt Date: 20130308
  Transmission Date: 20140127
  Serious: No
  Sender: FDA-Public Use
  Company Number: US-ASTELLAS-2012US011481

PATIENT
  Age: 69 Year
  Sex: Male

DRUGS (5)
  1. XTANDI [Suspect]
     Indication: PROSTATE CANCER
     Dosage: UNK
     Route: 065
     Dates: start: 201209
  2. METOPROLOL [Concomitant]
     Indication: PRODUCT USED FOR UNKNOWN INDICATION
     Dosage: 20 MG, BID
     Route: 065
  3. ADVIL                              /00109201/ [Concomitant]
     Indication: PRODUCT USED FOR UNKNOWN INDICATION
     Dosage: UNK
     Route: 065
  4. HYDROCODONE [Concomitant]
     Indication: PRODUCT USED FOR UNKNOWN INDICATION
     Dosage: 10/500, PRN, QHS
     Dates: start: 20120912
  5. VALIUM                             /00017001/ [Concomitant]
     Indication: PRODUCT USED FOR UNKNOWN INDICATION
     Dosage: UNK

REACTIONS (6)
  - Restless legs syndrome [Unknown]
  - Formication [Unknown]
  - Insomnia [Not Recovered/Not Resolved]
  - Hot flush [Not Recovered/Not Resolved]
  - Prostatic specific antigen increased [Unknown]
  - Nervousness [Not Recovered/Not Resolved]
